FAERS Safety Report 20572810 (Version 2)
Quarter: 2022Q2

REPORT INFORMATION
  Report Type: Report from Study
  Country: US (occurrence: US)
  Receive Date: 20220309
  Receipt Date: 20220609
  Transmission Date: 20220721
  Serious: Yes (Death, Hospitalization)
  Sender: FDA-Public Use
  Company Number: US-OTSUKA-2022_010645

PATIENT
  Age: 77 Year
  Sex: Female

DRUGS (1)
  1. BREXPIPRAZOLE [Suspect]
     Active Substance: BREXPIPRAZOLE
     Indication: Major depression
     Dosage: 0.5 MG
     Route: 065
     Dates: start: 2021

REACTIONS (3)
  - COVID-19 [Fatal]
  - Pneumonia [Fatal]
  - Thrombosis [Unknown]

NARRATIVE: CASE EVENT DATE: 20220201
